FAERS Safety Report 8501337 (Version 2)
Quarter: 2012Q4

REPORT INFORMATION
  Report Type: 
  Country: DE (occurrence: DE)
  Receive Date: 20120410
  Receipt Date: 20121019
  Transmission Date: 20130627
  Serious: Yes (Hospitalization, Other)
  Sender: FDA-Public Use
  Company Number: DE-BRISTOL-MYERS SQUIBB COMPANY-16386765

PATIENT
  Age: 60 Year
  Sex: Male

DRUGS (5)
  1. YERVOY [Suspect]
     Indication: METASTATIC MALIGNANT MELANOMA
     Dates: start: 2012
  2. DECORTIN [Concomitant]
     Dosage: also taken in 0.5mg/kg dose, 40 mg/day
     Route: 048
     Dates: start: 1996
  3. RANITIDINE [Concomitant]
  4. BISOPROLOL [Concomitant]
  5. ZOPICLONE [Concomitant]

REACTIONS (5)
  - Metastases to lung [Unknown]
  - Muscular sarcoidosis [Unknown]
  - Musculoskeletal stiffness [Unknown]
  - Myalgia [Recovering/Resolving]
  - Fatigue [Unknown]
